FAERS Safety Report 8600458-8 (Version None)
Quarter: 2012Q3

REPORT INFORMATION
  Report Type: 
  Country: None (occurrence: None)
  Receive Date: 20120817
  Receipt Date: 20120807
  Transmission Date: 20120928
  Serious: No
  Sender: FDA-Public Use
  Company Number: JP-ELI_LILLY_AND_COMPANY-JP201208003057

PATIENT
  Age: 65 Year
  Sex: Female

DRUGS (2)
  1. YOKUKAN-SAN [Concomitant]
     Indication: ANXIETY
     Dosage: UNK
     Route: 048
     Dates: start: 20111222, end: 20120416
  2. CYMBALTA [Suspect]
     Indication: DEPRESSION
     Dosage: 20 MG, QD
     Route: 048
     Dates: start: 20111222, end: 20120416

REACTIONS (1)
  - HEPATIC FUNCTION ABNORMAL [None]
